FAERS Safety Report 8490382-6 (Version None)
Quarter: 2012Q3

REPORT INFORMATION
  Report Type: 
  Country: None (occurrence: None)
  Receive Date: 20120705
  Receipt Date: 20120628
  Transmission Date: 20120928
  Serious: Yes (Hospitalization, Other)
  Sender: FDA-Public Use
  Company Number: US-PFIZER INC-2012003194

PATIENT
  Sex: Female
  Weight: 136 kg

DRUGS (5)
  1. LYRICA [Suspect]
     Indication: PAIN IN EXTREMITY
     Dosage: 75 MG, 2X/DAY
     Route: 048
  2. HYDROCHLOROTHIAZIDE [Concomitant]
     Indication: BLOOD PRESSURE ABNORMAL
     Dosage: 0.25 MG, 1X/DAY
  3. CELEBREX [Suspect]
     Dosage: UNK
  4. LYRICA [Suspect]
     Indication: BACK DISORDER
  5. LYRICA [Suspect]
     Indication: SPINAL DISORDER

REACTIONS (6)
  - FINGER DEFORMITY [None]
  - HAND REPAIR OPERATION [None]
  - BRONCHITIS [None]
  - PNEUMONIA [None]
  - PULMONARY MASS [None]
  - FIBROMYALGIA [None]
